FAERS Safety Report 14302684 (Version 2)
Quarter: 2018Q1

REPORT INFORMATION
  Report Type: Spontaneous
  Country: FR (occurrence: FR)
  Receive Date: 20171219
  Receipt Date: 20180115
  Transmission Date: 20180509
  Serious: Yes (Death)
  Sender: FDA-Public Use
  Company Number: FR-CIPLA LTD.-2017FR28631

PATIENT

DRUGS (20)
  1. FOLIC ACID. [Suspect]
     Active Substance: FOLIC ACID
     Indication: HYPOVITAMINOSIS
     Dosage: 1 DF, DAILY
     Route: 048
     Dates: end: 20171025
  2. SIMVASTATIN. [Suspect]
     Active Substance: SIMVASTATIN
     Indication: CARDIOVASCULAR EVENT PROPHYLAXIS
     Dosage: 20 MG, DAILY
     Route: 048
     Dates: end: 20171024
  3. ATROVENT [Suspect]
     Active Substance: IPRATROPIUM BROMIDE
     Indication: CHRONIC OBSTRUCTIVE PULMONARY DISEASE
     Dosage: 2 DF, DAILY
     Route: 055
     Dates: end: 20171024
  4. VICTOZA [Suspect]
     Active Substance: LIRAGLUTIDE
     Indication: DIABETES MELLITUS
     Dosage: 1 DF, WEEKLY
     Route: 058
     Dates: end: 20171024
  5. FLAGYL 500 MG, COMPRIME PELLICULE [Concomitant]
     Dosage: UNK
     Route: 065
  6. NOVORAPID [Concomitant]
     Active Substance: INSULIN ASPART
     Dosage: UNK
     Route: 065
  7. HYDROSOL POLYVITAMINE PHARMADEVELOPPEMENT SOLUTION BUVABLE EN GOUTTES [Suspect]
     Active Substance: VITAMINS
     Indication: HYPOVITAMINOSIS
     Dosage: 25 GTT, DAILY
     Route: 048
     Dates: end: 20171024
  8. HEPARIN [Concomitant]
     Active Substance: HEPARIN SODIUM
     Dosage: UNK
     Route: 065
  9. HYDROXOCOBALAMINE [Suspect]
     Active Substance: HYDROXOCOBALAMIN
     Indication: HYPOVITAMINOSIS
     Dosage: 1 DF, 2 WEEKS
     Route: 048
     Dates: end: 20171024
  10. BRICANYL [Suspect]
     Active Substance: TERBUTALINE SULFATE
     Indication: CHRONIC OBSTRUCTIVE PULMONARY DISEASE
     Dosage: 2 DF, DAILY
     Route: 055
     Dates: end: 20171024
  11. NOVONORM 1 MG, COMPRIME [Suspect]
     Active Substance: REPAGLINIDE
     Indication: DIABETES MELLITUS
     Dosage: 3 DF, DAILY
     Route: 048
     Dates: end: 20171024
  12. SILODYX 8 MG, GELULE [Suspect]
     Active Substance: SILODOSIN
     Indication: BENIGN PROSTATIC HYPERPLASIA
     Dosage: 1 DF, DAILY
     Route: 048
     Dates: end: 20171024
  13. NOVOMIX 30 100 U/ML [Suspect]
     Active Substance: INSULIN ASPART
     Indication: DIABETES MELLITUS
     Dosage: 20 IU, DAILY
     Route: 058
     Dates: end: 20171024
  14. PREVISCAN 20 MG, COMPRIME SECABLE [Suspect]
     Active Substance: FLUINDIONE
     Indication: ATRIAL FIBRILLATION
     Dosage: 25 MG, DAILY
     Route: 048
     Dates: end: 20171024
  15. PARACETAMOL [Concomitant]
     Active Substance: ACETAMINOPHEN
     Dosage: UNK
     Route: 065
  16. FUROSEMIDE. [Concomitant]
     Active Substance: FUROSEMIDE
     Dosage: UNK
     Route: 065
  17. PANTOPRAZOLE [Concomitant]
     Active Substance: PANTOPRAZOLE
     Dosage: UNK
     Route: 065
  18. LEVOFLOXACIN. [Suspect]
     Active Substance: LEVOFLOXACIN
     Indication: OSTEITIS
     Dosage: 2 DF, DAILY
     Route: 048
     Dates: start: 20171013, end: 20171025
  19. BACTRIM [Suspect]
     Active Substance: SULFAMETHOXAZOLE\TRIMETHOPRIM
     Indication: OSTEITIS
     Dosage: 3 DF, DAILY
     Route: 048
     Dates: start: 20171016, end: 20171025
  20. RESIKALI [Suspect]
     Active Substance: CALCIUM POLYSTYRENE SULFONATE
     Indication: HYPERKALAEMIA
     Dosage: 4 ML, QD
     Route: 065
     Dates: end: 20171024

REACTIONS (1)
  - Acute kidney injury [Fatal]

NARRATIVE: CASE EVENT DATE: 20171023
